FAERS Safety Report 9508868 (Version 1)
Quarter: 2013Q3

REPORT INFORMATION
  Report Type: Spontaneous
  Country: US (occurrence: US)
  Receive Date: 20130909
  Receipt Date: 20130909
  Transmission Date: 20140515
  Serious: Yes (Death, Hospitalization)
  Sender: FDA-Public Use
  Company Number: US-SANOFI-AVENTIS-2013SA088942

PATIENT
  Age: 80 Year
  Sex: Female

DRUGS (3)
  1. LOVENOX [Suspect]
     Route: 065
  2. XARELTO [Suspect]
     Route: 048
  3. XARELTO [Suspect]
     Route: 048
     Dates: end: 20130816

REACTIONS (7)
  - Death [Fatal]
  - Deep vein thrombosis [Unknown]
  - Pneumonia bacterial [Unknown]
  - Chronic respiratory failure [Unknown]
  - Pulmonary mass [Unknown]
  - Creatinine renal clearance abnormal [Unknown]
  - Hypersensitivity [Unknown]
